FAERS Safety Report 10261205 (Version 1)
Quarter: 2014Q2

REPORT INFORMATION
  Report Type: Spontaneous
  Country: US (occurrence: US)
  Receive Date: 20140626
  Receipt Date: 20140626
  Transmission Date: 20141212
  Serious: Yes (Other)
  Sender: FDA-Public Use
  Company Number: US-BAYER-2014-090998

PATIENT
  Age: 51 Year
  Sex: Female

DRUGS (4)
  1. BETASERON [Suspect]
     Indication: MULTIPLE SCLEROSIS
     Dosage: 0.3 MG, QOD
     Dates: start: 201205
  2. AMPYRA [Concomitant]
     Indication: GAIT DISTURBANCE
     Dosage: 10 MG, BID
  3. AMPYRA [Concomitant]
     Indication: ASTHENIA
  4. GABAPENTIN [Concomitant]
     Dosage: 300 MG, TID

REACTIONS (2)
  - Multiple sclerosis relapse [None]
  - JC virus test positive [None]
